FAERS Safety Report 6157875-8 (Version None)
Quarter: 2009Q2

REPORT INFORMATION
  Report Type: 
  Country: None (occurrence: None)
  Receive Date: 20090414
  Receipt Date: 20090406
  Transmission Date: 20091009
  Serious: Yes (Other)
  Sender: FDA-Public Use
  Company Number: 2009EU000731

PATIENT
  Age: 20 Year
  Sex: Male

DRUGS (2)
  1. PROTOPIC [Suspect]
     Indication: DERMATITIS ATOPIC
     Dosage: /D, TOPICAL
     Route: 061
     Dates: start: 20090215, end: 20090215
  2. BIAFINE (STEARYL ALCOHOL, ETHYLENE GLYCOL, MONOSTEARATE TROLAMINE) [Concomitant]

REACTIONS (6)
  - EYE IRRITATION [None]
  - EYE OEDEMA [None]
  - FACE OEDEMA [None]
  - GINGIVAL INFECTION [None]
  - OFF LABEL USE [None]
  - WOUND SECRETION [None]
